FAERS Safety Report 21375544 (Version 2)
Quarter: 2022Q4

REPORT INFORMATION
  Report Type: Spontaneous
  Country: US (occurrence: US)
  Receive Date: 20220926
  Receipt Date: 20221111
  Transmission Date: 20230112
  Serious: Yes (Hospitalization)
  Sender: FDA-Public Use
  Company Number: US-BEH-2022149942

PATIENT
  Sex: Male

DRUGS (3)
  1. HIZENTRA [Suspect]
     Active Substance: HUMAN IMMUNOGLOBULIN G
     Indication: Immunodeficiency common variable
     Dosage: 30 GRAM, QOW
     Route: 058
     Dates: start: 202206
  2. HIZENTRA [Suspect]
     Active Substance: HUMAN IMMUNOGLOBULIN G
     Indication: Asthma
  3. DUPILUMAB [Concomitant]
     Active Substance: DUPILUMAB

REACTIONS (3)
  - Sepsis [Unknown]
  - No adverse event [Unknown]
  - Off label use [Unknown]
